FAERS Safety Report 8897079 (Version 1)
Quarter: 2012Q4

REPORT INFORMATION
  Report Type: Spontaneous
  Country: US (occurrence: None)
  Receive Date: 20121031
  Receipt Date: 20121031
  Transmission Date: 20130627
  Serious: Yes (Death, Other)
  Sender: FDA-Public Use
  Company Number: 2012MA012506

PATIENT
  Age: 48 Year
  Sex: Male

DRUGS (4)
  1. LEVETIRACETAM [Suspect]
     Indication: CONVULSION PROPHYLAXIS
  2. BENZOYLECGONINE [Concomitant]
  3. CITALOPRAM [Concomitant]
  4. CYCLOBENZAPRINE [Concomitant]

REACTIONS (4)
  - Completed suicide [None]
  - Toxicity to various agents [None]
  - Cardiomegaly [None]
  - Coronary artery disease [None]
